FAERS Safety Report 24363884 (Version 1)
Quarter: 2024Q3

REPORT INFORMATION
  Report Type: Spontaneous
  Country: US (occurrence: US)
  Receive Date: 20240925
  Receipt Date: 20240925
  Transmission Date: 20241016
  Serious: No
  Sender: RIGEL PHARMACEUTICALS
  Company Number: US-RIGEL Pharmaceuticals, INC-20240700046

PATIENT
  Age: 47 Year
  Sex: Female
  Weight: 81.65 kg

DRUGS (7)
  1. REZLIDHIA [Suspect]
     Active Substance: OLUTASIDENIB
     Indication: Brain neoplasm malignant
     Dosage: 150 MG, BID, INTERRUPTED DOSE
     Route: 048
     Dates: start: 20240515, end: 20240611
  2. REZLIDHIA [Suspect]
     Active Substance: OLUTASIDENIB
     Dosage: 150 003
     Route: 048
     Dates: start: 20240613
  3. ATORVASTATIN [Concomitant]
     Active Substance: ATORVASTATIN
     Indication: Product used for unknown indication
     Dosage: UNK
  4. VITAMIN B12 [Concomitant]
     Active Substance: CYANOCOBALAMIN
     Indication: Product used for unknown indication
     Dosage: UNK
  5. VASCEPA [Concomitant]
     Active Substance: ICOSAPENT ETHYL
     Indication: Product used for unknown indication
     Dosage: UNK
  6. COENZYME Q10 [Concomitant]
     Active Substance: DIETARY SUPPLEMENT\UBIDECARENONE
     Indication: Product used for unknown indication
     Dosage: UNK
  7. VITAMIN D NOS [Concomitant]
     Active Substance: CHOLECALCIFEROL\ERGOCALCIFEROL
     Indication: Product used for unknown indication
     Dosage: UNK

REACTIONS (2)
  - Off label use [Unknown]
  - Hepatic enzyme increased [Recovered/Resolved with Sequelae]

NARRATIVE: CASE EVENT DATE: 20240611
